FAERS Safety Report 26096155 (Version 1)
Quarter: 2025Q4

REPORT INFORMATION
  Report Type: Spontaneous
  Country: US (occurrence: US)
  Receive Date: 20251127
  Receipt Date: 20251127
  Transmission Date: 20260118
  Serious: No
  Sender: AUROBINDO
  Company Number: US-AUROBINDO-AUR-APL-2025-049990

PATIENT
  Age: 36 Year
  Sex: Female
  Weight: 92.98 kg

DRUGS (1)
  1. ARIPIPRAZOLE [Suspect]
     Active Substance: ARIPIPRAZOLE
     Indication: Bipolar disorder
     Dosage: 2 MILLIGRAM

REACTIONS (4)
  - Emotional disorder [Recovered/Resolved]
  - Exposure during pregnancy [Unknown]
  - Product commingling [Unknown]
  - Product administration error [Unknown]
